FAERS Safety Report 4645523-5 (Version None)
Quarter: 2005Q2

REPORT INFORMATION
  Report Type: 
  Country: None (occurrence: None)
  Receive Date: 20050425
  Receipt Date: 20050414
  Transmission Date: 20051028
  Serious: Yes (Hospitalization)
  Sender: FDA-Public Use
  Company Number: 2005PK00631

PATIENT
  Age: 51 Year
  Sex: Male

DRUGS (7)
  1. BELOC ZOK [Suspect]
     Dosage: 1 DF DAILY PO
     Route: 048
  2. HUMALOG MIX [Suspect]
     Dates: end: 20050328
  3. HUMALOG MIX 25 [Suspect]
     Dates: end: 20050328
  4. HUMALOG NPL [Suspect]
  5. LASIX [Concomitant]
  6. ZOCOR [Concomitant]
  7. PLAVIX [Concomitant]

REACTIONS (2)
  - HYPOGLYCAEMIA [None]
  - VOMITING [None]
